FAERS Safety Report 18249188 (Version 1)
Quarter: 2020Q3

REPORT INFORMATION
  Report Type: Spontaneous
  Country: US (occurrence: US)
  Receive Date: 20200910
  Receipt Date: 20200910
  Transmission Date: 20201103
  Serious: No
  Sender: FDA-Public Use
  Company Number: US-BAUSCH-BL-2020-024830

PATIENT
  Sex: Female

DRUGS (1)
  1. CVS EYE ALLERGY RELIEF [Suspect]
     Active Substance: NAPHAZOLINE HYDROCHLORIDE\PHENIRAMINE MALEATE
     Indication: EYE ALLERGY
     Dosage: STARTED ABOUT 1.5 WEEKS PRIOR TO THE DATE OF INITIAL REPORT, ONE DROP FOR 2?3 DAYS IN EACH EYE
     Route: 047
     Dates: start: 202008, end: 202008

REACTIONS (3)
  - Eye irritation [Unknown]
  - Eye swelling [Recovering/Resolving]
  - Eye pain [Unknown]

NARRATIVE: CASE EVENT DATE: 202008
